FAERS Safety Report 6924240 (Version 3)
Quarter: 2012Q4

REPORT INFORMATION
  Report Type: Report from Study
  Country: US (occurrence: US)
  Receive Date: 20090227
  Receipt Date: 20121005
  Transmission Date: 20130627
  Serious: Yes (Hospitalization)
  Sender: FDA-Public Use
  Company Number: PHHO2009US01366

PATIENT
  Age: 56 Year
  Sex: Male
  Weight: 61.22 kg

DRUGS (30)
  1. ACLASTA/ZOLEDRONATE [Suspect]
     Indication: ORGAN TRANSPLANT
     Dosage: Double blind
     Route: 042
     Dates: start: 20081229, end: 20090122
  2. ALENDRONATE SODIUM [Suspect]
     Indication: ORGAN TRANSPLANT
     Dosage: Double blind
     Route: 042
     Dates: start: 20081229, end: 20090122
  3. BLINDED NO TREATMENT RECEIVED [Suspect]
     Indication: ORGAN TRANSPLANT
     Dosage: Double blind
     Route: 042
     Dates: start: 20081229, end: 20090122
  4. CYCLOSPORINE [Suspect]
     Indication: TRANSPLANT
  5. DRISDOL [Suspect]
     Dosage: 50,000 units a day for 5 days
     Dates: start: 20081218
  6. CALCIUM [Concomitant]
  7. VITAMIN D [Concomitant]
  8. CELLCEPT [Concomitant]
  9. PREDNISONE [Concomitant]
  10. MEPRON [Concomitant]
  11. MYCOSTATIN [Concomitant]
  12. VALCYTE [Concomitant]
  13. ASPIRIN [Concomitant]
  14. LIPITOR [Concomitant]
  15. SYNTHROID [Concomitant]
  16. SILDENAFIL [Concomitant]
  17. NEXIUM [Concomitant]
  18. CITRACAL [Concomitant]
  19. IRON [Concomitant]
  20. LANTUS [Concomitant]
  21. ATOVAQUONE [Concomitant]
  22. MATERNA [Concomitant]
  23. KLONOPIN [Concomitant]
  24. ASA [Concomitant]
  25. PRENATAL [Concomitant]
  26. TYLENOL [Concomitant]
  27. PERCOCET [Concomitant]
  28. ALENDRONATE SODIUM [Concomitant]
  29. TRAZODONE [Concomitant]
  30. SENNA [Concomitant]

REACTIONS (16)
  - Renal impairment [Recovering/Resolving]
  - Nephrolithiasis [Recovering/Resolving]
  - Toxicity to various agents [Recovering/Resolving]
  - Dyspnoea [Recovering/Resolving]
  - Dizziness [Recovering/Resolving]
  - Flank pain [Recovering/Resolving]
  - Urethral dilatation [Recovering/Resolving]
  - Renal disorder [Recovering/Resolving]
  - Renal atrophy [Recovering/Resolving]
  - Sepsis [Recovering/Resolving]
  - Neutropenia [Recovering/Resolving]
  - Empyema [Recovering/Resolving]
  - Staphylococcal bacteraemia [Recovering/Resolving]
  - Pleural effusion [Recovering/Resolving]
  - Aspiration pleural cavity [Recovering/Resolving]
  - Catheterisation cardiac [Recovering/Resolving]
